FAERS Safety Report 22374158 (Version 1)
Quarter: 2023Q2

REPORT INFORMATION
  Report Type: Spontaneous
  Country: US (occurrence: US)
  Receive Date: 20230526
  Receipt Date: 20230526
  Transmission Date: 20230722
  Serious: No
  Sender: FDA-Public Use
  Company Number: US-LEO Pharma-352346

PATIENT
  Age: 56 Year
  Sex: Female

DRUGS (18)
  1. GARLIC CAPSULE [Concomitant]
     Indication: Product used for unknown indication
     Dosage: DOSAGE : 1000 MG
  2. MULTIVITAMIN CAPSULE, [Concomitant]
     Indication: Product used for unknown indication
  3. ROSUVASTATIN CALCIUM [Concomitant]
     Active Substance: ROSUVASTATIN CALCIUM
     Indication: Product used for unknown indication
     Dosage: DOSAGE : 10 MG TABLET
  4. ADBRY [Suspect]
     Active Substance: TRALOKINUMAB-LDRM
     Indication: Dermatitis atopic
     Dosage: DOSAGE : 4 SYRINGES (600 MG) UNDER THE SKIN ON DAY 1 THEN  2 SYRINGES (300 MG) EVERY OTHER WEEK
     Dates: start: 20230518
  5. ADBRY [Suspect]
     Active Substance: TRALOKINUMAB-LDRM
     Indication: Dermatitis atopic
     Dosage: DOSAGE : 4 SYRINGES (600 MG) UNDER THE SKIN ON DAY 1 THEN  2 SYRINGES (300 MG) EVERY OTHER WEEK
     Dates: start: 20230518
  6. ADBRY [Suspect]
     Active Substance: TRALOKINUMAB-LDRM
     Indication: Dermatitis atopic
     Dosage: DOSAGE : 4 SYRINGES (600 MG) UNDER THE SKIN ON DAY 1 THEN  2 SYRINGES (300 MG) EVERY OTHER WEEK
     Dates: start: 20230518
  7. ADBRY [Suspect]
     Active Substance: TRALOKINUMAB-LDRM
     Indication: Dermatitis atopic
     Dosage: DOSAGE : 4 SYRINGES (600 MG) UNDER THE SKIN ON DAY 1 THEN  2 SYRINGES (300 MG) EVERY OTHER WEEK
     Dates: start: 20230518
  8. ADBRY [Suspect]
     Active Substance: TRALOKINUMAB-LDRM
     Indication: Dermatitis atopic
     Dosage: DOSAGE : 4 SYRINGES (600 MG) UNDER THE SKIN ON DAY 1 THEN  2 SYRINGES (300 MG) EVERY OTHER WEEK
  9. ADBRY [Suspect]
     Active Substance: TRALOKINUMAB-LDRM
     Indication: Dermatitis atopic
     Dosage: DOSAGE : 4 SYRINGES (600 MG) UNDER THE SKIN ON DAY 1 THEN  2 SYRINGES (300 MG) EVERY OTHER WEEK
  10. ADBRY [Suspect]
     Active Substance: TRALOKINUMAB-LDRM
     Indication: Dermatitis atopic
     Dosage: DOSAGE : 4 SYRINGES (600 MG) UNDER THE SKIN ON DAY 1 THEN  2 SYRINGES (300 MG) EVERY OTHER WEEK
  11. ADBRY [Suspect]
     Active Substance: TRALOKINUMAB-LDRM
     Indication: Dermatitis atopic
     Dosage: DOSAGE : 4 SYRINGES (600 MG) UNDER THE SKIN ON DAY 1 THEN  2 SYRINGES (300 MG) EVERY OTHER WEEK
  12. HYDROXYZINE HYDROCHLORIDE [Concomitant]
     Active Substance: HYDROXYZINE HYDROCHLORIDE
     Indication: Product used for unknown indication
     Dosage: DOSAGE : 25 MG TABLET
  13. FISH OIL [Concomitant]
     Active Substance: FISH OIL
     Indication: Product used for unknown indication
     Dosage: DOSAGE : 100-160 MG CAPSULE
  14. LEVOCETIRIZINE DIHYDROCHLORIDE, [Concomitant]
     Indication: Product used for unknown indication
  15. TACROLIMUS OINT [Concomitant]
     Indication: Product used for unknown indication
     Dosage: DOSAGE : 0.1%
  16. LABETALOL HYDROCHLORIDE [Concomitant]
     Active Substance: LABETALOL HYDROCHLORIDE
     Indication: Product used for unknown indication
     Dosage: DOSAGE : 100 MG TABLET
  17. OPZELURA CREAM [Concomitant]
     Indication: Product used for unknown indication
     Dosage: DOSAGE : 1.5%
  18. CLOBETASOL PROPIONATE [Concomitant]
     Active Substance: CLOBETASOL PROPIONATE
     Indication: Product used for unknown indication
     Dosage: DOSAGE : 0.05 % CREAM(GM)

REACTIONS (6)
  - Skin exfoliation [Recovering/Resolving]
  - Skin exfoliation [Recovering/Resolving]
  - Skin fissures [Recovering/Resolving]
  - Skin exfoliation [Recovering/Resolving]
  - Skin fissures [Recovering/Resolving]
  - Skin exfoliation [Recovering/Resolving]

NARRATIVE: CASE EVENT DATE: 20230522
